FAERS Safety Report 6264966-X (Version None)
Quarter: 2009Q3

REPORT INFORMATION
  Report Type: 
  Country: None (occurrence: None)
  Receive Date: 20090713
  Receipt Date: 20090706
  Transmission Date: 20100115
  Serious: Yes (Other)
  Sender: FDA-Public Use
  Company Number: US-RANBAXY-2009US-25462

PATIENT

DRUGS (4)
  1. ISOTRETINOIN [Suspect]
     Indication: DRUG USE FOR UNKNOWN INDICATION
     Dosage: 30 MG BID
     Route: 048
     Dates: start: 20090206, end: 20090706
  2. ISOTRETINOIN [Suspect]
     Dosage: 40 MG, UNK
     Route: 048
  3. AMNESTEEM [Suspect]
     Indication: DRUG USE FOR UNKNOWN INDICATION
     Dosage: 40 MG QD
     Route: 048
     Dates: start: 20070404
  4. AMNESTEEM [Suspect]
     Dosage: 40 MG QD
     Route: 048
     Dates: start: 20061128, end: 20070101

REACTIONS (1)
  - PREGNANCY [None]
